FAERS Safety Report 21841997 (Version 1)
Quarter: 2023Q1

REPORT INFORMATION
  Report Type: Other
  Country: IN (occurrence: None)
  Receive Date: 20230110
  Receipt Date: 20230110
  Transmission Date: 20230417
  Serious: Yes (Other)
  Sender: FDA-Public Use
  Company Number: IN-ROCHE-3260380

PATIENT
  Sex: Male

DRUGS (1)
  1. PERJETA [Suspect]
     Active Substance: PERTUZUMAB
     Indication: Gallbladder cancer
     Dosage: FORMULATION: INJECTION
     Route: 042
     Dates: start: 20220713

REACTIONS (3)
  - Off label use [Unknown]
  - Jaundice cholestatic [Unknown]
  - Pyrexia [Unknown]
